FAERS Safety Report 12081463 (Version 2)
Quarter: 2016Q1

REPORT INFORMATION
  Report Type: Spontaneous
  Country: IT (occurrence: IT)
  Receive Date: 20160216
  Receipt Date: 20160218
  Transmission Date: 20160526
  Serious: Yes (Hospitalization)
  Sender: FDA-Public Use
  Company Number: IT-TEVA-633361ACC

PATIENT
  Age: 48 Year
  Sex: Female

DRUGS (5)
  1. OLANZAPINE. [Suspect]
     Active Substance: OLANZAPINE
     Indication: INTENTIONAL SELF-INJURY
     Dosage: 25 MG TOTAL
     Route: 048
     Dates: start: 20160104, end: 20160104
  2. ABILIFY [Suspect]
     Active Substance: ARIPIPRAZOLE
     Indication: INTENTIONAL SELF-INJURY
     Dosage: 5 DOSAGE FORMS DAILY; 5 DF DAILY
     Route: 048
     Dates: start: 20160104, end: 20160104
  3. CITALOPRAM EG - 20 MG COMPRESSE RIVESTITE CON FILM - EG S.P.A. [Suspect]
     Active Substance: CITALOPRAM HYDROBROMIDE
     Indication: INTENTIONAL SELF-INJURY
     Dosage: 100 MG TOTAL
     Route: 048
     Dates: start: 20160104, end: 20160104
  4. VALPROIC ACID. [Suspect]
     Active Substance: VALPROIC ACID
     Indication: INTENTIONAL SELF-INJURY
     Dosage: 1500 MILLIGRAM DAILY; 1500 MG DAILY
     Route: 048
     Dates: start: 20160104, end: 20160104
  5. SERTRALINE HYDROCHLORIDE. [Suspect]
     Active Substance: SERTRALINE HYDROCHLORIDE
     Indication: INTENTIONAL SELF-INJURY
     Dosage: 250 MG TOTAL
     Route: 048
     Dates: start: 20160104, end: 20160104

REACTIONS (3)
  - Agitation [Unknown]
  - Intentional self-injury [Unknown]
  - Hypocalcaemia [Unknown]

NARRATIVE: CASE EVENT DATE: 20160104
